FAERS Safety Report 10313811 (Version 1)
Quarter: 2014Q3

REPORT INFORMATION
  Report Type: Spontaneous
  Country: US (occurrence: US)
  Receive Date: 20140718
  Receipt Date: 20140718
  Transmission Date: 20150326
  Serious: No
  Sender: FDA-Public Use
  Company Number: US-BAUSCH-BL-2014-002092

PATIENT
  Age: 79 Year
  Sex: Female
  Weight: 76.27 kg

DRUGS (3)
  1. PREDNISOLONE. [Suspect]
     Active Substance: PREDNISOLONE
     Indication: POST PROCEDURAL COMPLICATION
     Dosage: ONE DROP FOUR TIMES A DAY
     Route: 047
     Dates: start: 20140318
  2. LISINOPRIL. [Concomitant]
     Active Substance: LISINOPRIL
     Indication: PRODUCT USED FOR UNKNOWN INDICATION
     Dates: start: 2013
  3. PROLENSA [Suspect]
     Active Substance: BROMFENAC SODIUM
     Indication: POST PROCEDURAL COMPLICATION
     Dosage: ONE DROP ONCE A DAY
     Route: 047
     Dates: start: 20140318, end: 20140420

REACTIONS (4)
  - Vision blurred [Not Recovered/Not Resolved]
  - Eye irritation [Not Recovered/Not Resolved]
  - Dry eye [Not Recovered/Not Resolved]
  - Eye pruritus [Not Recovered/Not Resolved]

NARRATIVE: CASE EVENT DATE: 20140318
